FAERS Safety Report 25108390 (Version 5)
Quarter: 2025Q3

REPORT INFORMATION
  Report Type: Spontaneous
  Country: CA (occurrence: CA)
  Receive Date: 20250322
  Receipt Date: 20250919
  Transmission Date: 20251021
  Serious: Yes (Hospitalization, Disabling, Other)
  Sender: CELLTRION
  Company Number: CA-CELLTRION INC.-2025CA008165

PATIENT

DRUGS (1)
  1. STEQEYMA [Suspect]
     Active Substance: USTEKINUMAB-STBA
     Indication: Psoriasis
     Route: 058

REACTIONS (5)
  - Dementia [Unknown]
  - Deafness [Unknown]
  - Joint dislocation [Unknown]
  - Intentional dose omission [Unknown]
  - Product availability issue [Unknown]

NARRATIVE: CASE EVENT DATE: 20250509
